FAERS Safety Report 11145367 (Version 1)
Quarter: 2015Q2

REPORT INFORMATION
  Report Type: Spontaneous
  Country: US (occurrence: None)
  Receive Date: 20150526
  Receipt Date: 20150526
  Transmission Date: 20150821
  Serious: Yes (Hospitalization)
  Sender: FDA-Public Use
  Company Number: SP09451

PATIENT
  Age: 56 Year
  Sex: Female
  Weight: 90.72 kg

DRUGS (11)
  1. PROPRANOLOL [Concomitant]
     Active Substance: PROPRANOLOL\PROPRANOLOL HYDROCHLORIDE
  2. PROMETHAZINE [Concomitant]
     Active Substance: PROMETHAZINE\PROMETHAZINE HYDROCHLORIDE
  3. LASIX [Concomitant]
     Active Substance: FUROSEMIDE
  4. OMEPRAZOLE. [Concomitant]
     Active Substance: OMEPRAZOLE
  5. MELATONIN [Concomitant]
     Active Substance: MELATONIN
  6. BUMEX [Concomitant]
     Active Substance: BUMETANIDE
  7. CIPRO [Concomitant]
     Active Substance: CIPROFLOXACIN HYDROCHLORIDE
  8. LORAZEPAM. [Concomitant]
     Active Substance: LORAZEPAM
  9. TRAZODONE [Concomitant]
     Active Substance: TRAZODONE HYDROCHLORIDE
  10. RELISTOR [Suspect]
     Active Substance: METHYLNALTREXONE BROMIDE
     Indication: COLONIC PSEUDO-OBSTRUCTION
     Dosage: FEW DOSES
     Dates: start: 201305
  11. VITAMIN B12 [Concomitant]
     Active Substance: CYANOCOBALAMIN

REACTIONS (3)
  - Weight decreased [None]
  - Ileus [None]
  - Drug dose omission [None]

NARRATIVE: CASE EVENT DATE: 2015
